FAERS Safety Report 7725896-7 (Version None)
Quarter: 2011Q3

REPORT INFORMATION
  Report Type: 
  Country: None (occurrence: None)
  Receive Date: 20110902
  Receipt Date: 20110822
  Transmission Date: 20111222
  Serious: Yes (Other)
  Sender: FDA-Public Use
  Company Number: FR-JNJFOC-20110810235

PATIENT
  Sex: Male
  Weight: 88 kg

DRUGS (5)
  1. TMC114 [Suspect]
     Indication: HIV INFECTION
     Route: 048
     Dates: start: 20110221
  2. NORVIR [Suspect]
     Indication: HIV INFECTION
     Dates: start: 20110221
  3. MARAVIROC [Suspect]
     Indication: HIV INFECTION
     Dates: start: 20110221
  4. TRUVADA [Concomitant]
     Indication: HIV INFECTION
     Dates: start: 20110221
  5. ISENTRESS [Suspect]
     Indication: HIV INFECTION
     Dates: start: 20110221

REACTIONS (1)
  - GAMMA-GLUTAMYLTRANSFERASE INCREASED [None]
